FAERS Safety Report 4425927-6 (Version None)
Quarter: 2004Q3

REPORT INFORMATION
  Report Type: 
  Country: None (occurrence: None)
  Receive Date: 20040810
  Receipt Date: 20040730
  Transmission Date: 20050211
  Serious: Yes (Death)
  Sender: FDA-Public Use
  Company Number: JP-JNJFOC-20040801544

PATIENT
  Sex: Male

DRUGS (1)
  1. PEPCID AC [Suspect]
     Indication: ABDOMINAL PAIN UPPER
     Dosage: 10 MG, 1 IN 1 DAY
     Route: 048
     Dates: start: 20040729, end: 20040729

REACTIONS (1)
  - SUDDEN DEATH [None]
